FAERS Safety Report 5784385-X (Version None)
Quarter: 2008Q2

REPORT INFORMATION
  Report Type: 
  Country: None (occurrence: None)
  Receive Date: 20080605
  Receipt Date: 20080404
  Transmission Date: 20081010
  Serious: No
  Sender: FDA-Public Use
  Company Number: A0719277A

PATIENT
  Age: 55 Year
  Sex: Female

DRUGS (3)
  1. ALLI [Suspect]
  2. TPN [Concomitant]
  3. OMEGA 3 [Concomitant]

REACTIONS (2)
  - FAECAL INCONTINENCE [None]
  - RECTAL DISCHARGE [None]
